FAERS Safety Report 11049210 (Version 3)
Quarter: 2017Q1

REPORT INFORMATION
  Report Type: Spontaneous
  Country: US (occurrence: US)
  Receive Date: 20150420
  Receipt Date: 20170224
  Transmission Date: 20170428
  Serious: Yes (Other)
  Sender: FDA-Public Use
  Company Number: US-PFIZER INC-2015131604

PATIENT
  Age: 51 Year
  Sex: Male
  Weight: 83.46 kg

DRUGS (3)
  1. LYRICA [Suspect]
     Active Substance: PREGABALIN
     Indication: DIABETIC NEUROPATHY
     Dosage: 300 MG, DAILY
     Route: 048
  2. OXYCODONE [Concomitant]
     Active Substance: OXYCODONE
     Dosage: 60 MG, 1X/DAY
  3. MORPHINE [Concomitant]
     Active Substance: MORPHINE
     Dosage: 45 MG, 1X/DAY

REACTIONS (7)
  - Weight increased [Unknown]
  - Pain in extremity [Unknown]
  - Burning sensation [Unknown]
  - Gait disturbance [Unknown]
  - Pain [Not Recovered/Not Resolved]
  - Condition aggravated [Not Recovered/Not Resolved]
  - Paraesthesia [Unknown]

NARRATIVE: CASE EVENT DATE: 201611
